FAERS Safety Report 10347378 (Version 2)
Quarter: 2014Q3

REPORT INFORMATION
  Report Type: Spontaneous
  Country: US (occurrence: None)
  Receive Date: 20140725
  Receipt Date: 20140801
  Transmission Date: 20150326
  Serious: Yes (Death, Hospitalization)
  Sender: FDA-Public Use
  Company Number: UNT-2014-004083

PATIENT
  Age: 48 Year
  Sex: Male
  Weight: 77.1 kg

DRUGS (2)
  1. TYVASO [Suspect]
     Active Substance: TREPROSTINIL
     Indication: COR PULMONALE CHRONIC
     Route: 055
     Dates: start: 20131102, end: 20140709
  2. ADCIRCA [Concomitant]
     Active Substance: TADALAFIL

REACTIONS (3)
  - Hemiparesis [None]
  - Cerebral haemorrhage [None]
  - Death [None]

NARRATIVE: CASE EVENT DATE: 20140707
